FAERS Safety Report 6685176-8 (Version None)
Quarter: 2010Q2

REPORT INFORMATION
  Report Type: 
  Country: None (occurrence: None)
  Receive Date: 20100416
  Receipt Date: 20100407
  Transmission Date: 20101027
  Serious: Yes (Other)
  Sender: FDA-Public Use
  Company Number: US-SANOFI-AVENTIS-2010SA008031

PATIENT
  Age: 65 Year
  Sex: Male
  Weight: 69.4 kg

DRUGS (21)
  1. LANTUS [Suspect]
     Indication: TYPE 2 DIABETES MELLITUS
     Dosage: EVERY NIGHT DOSE:26 UNIT(S)
     Route: 058
     Dates: start: 20020101
  2. OPTICLICK [Suspect]
     Indication: TYPE 2 DIABETES MELLITUS
     Dates: start: 20020101
  3. EPOGEN [Concomitant]
     Dosage: MONDAYS DOSE:15800 UNIT(S)
     Route: 048
     Dates: start: 20070630
  4. LASIX [Concomitant]
     Route: 048
     Dates: start: 20090921
  5. LABETALOL HCL [Concomitant]
     Indication: BLOOD PRESSURE
     Route: 048
     Dates: start: 20090818
  6. ZANAFLEX [Concomitant]
     Dosage: PRN AT HS
     Route: 048
     Dates: start: 20020101
  7. AMLODIPINE [Concomitant]
     Route: 048
     Dates: start: 20090701
  8. VITAMIN B6 [Concomitant]
     Dosage: 1 TAB DAILY
     Route: 048
     Dates: start: 20090624, end: 20091201
  9. PERCOCET [Concomitant]
     Dosage: 1-2 TABS EVERY 6 HOURS PRN
     Route: 048
     Dates: start: 20080430
  10. ZYRTEC [Concomitant]
     Route: 048
     Dates: start: 20080430
  11. VYTORIN [Concomitant]
     Route: 048
     Dates: start: 20080430
  12. ALL OTHER NON-THERAPEUTIC PRODUCTS [Concomitant]
     Dosage: 1 TAB QD
     Route: 048
     Dates: start: 20080430
  13. ALL OTHER NON-THERAPEUTIC PRODUCTS [Concomitant]
     Route: 048
     Dates: start: 20080430
  14. LEXAPRO [Concomitant]
     Dosage: Q AM
     Route: 048
     Dates: start: 20080430
  15. HUMALOG [Concomitant]
     Dosage: AC AND HS
     Route: 058
     Dates: start: 20080430
  16. ALL OTHER NON-THERAPEUTIC PRODUCTS [Concomitant]
     Route: 061
     Dates: start: 20080430
  17. TAMSULOSIN HYDROCHLORIDE [Concomitant]
     Route: 048
     Dates: start: 20080430
  18. AGGRENOX [Concomitant]
     Dosage: 1 TAB BID
     Route: 048
     Dates: start: 20080430
  19. HECTOROL [Concomitant]
     Dosage: THREE TIMES
     Dates: start: 20100302
  20. MINERALS NOS [Concomitant]
     Dosage: WITH MEALS
     Dates: start: 20100216
  21. MINERAL TAB [Concomitant]
     Dosage: WITH SNACKS
     Dates: start: 20100216

REACTIONS (1)
  - RENAL FAILURE [None]
